FAERS Safety Report 16230903 (Version 2)
Quarter: 2019Q2

REPORT INFORMATION
  Report Type: Report from Study
  Country: IT (occurrence: IT)
  Receive Date: 20190423
  Receipt Date: 20190507
  Transmission Date: 20190711
  Serious: Yes (Congenital Anomaly)
  Sender: FDA-Public Use
  Company Number: IT-BIOGEN-2019BI00727314

PATIENT
  Age: 0 Year
  Sex: Male

DRUGS (2)
  1. TECFIDERA [Suspect]
     Active Substance: DIMETHYL FUMARATE
     Indication: MATERNAL EXPOSURE TIMING UNSPECIFIED
     Route: 064
  2. TECFIDERA [Suspect]
     Active Substance: DIMETHYL FUMARATE
     Route: 064
     Dates: start: 20160614, end: 20180114

REACTIONS (1)
  - Hypospadias [Not Recovered/Not Resolved]

NARRATIVE: CASE EVENT DATE: 20180911
